FAERS Safety Report 7812865-1 (Version None)
Quarter: 2011Q4

REPORT INFORMATION
  Report Type: 
  Country: None (occurrence: None)
  Receive Date: 20111013
  Receipt Date: 20111006
  Transmission Date: 20120403
  Serious: No
  Sender: FDA-Public Use
  Company Number: US-UCBSA-041715

PATIENT
  Age: 37 Year
  Sex: Female
  Weight: 64 kg

DRUGS (10)
  1. NORVASC [Concomitant]
  2. PRED [Concomitant]
     Dosage: 20 ONCE A DAY
  3. XANAX [Concomitant]
  4. NEORAL [Concomitant]
  5. DILAUDID [Concomitant]
  6. CELEXA [Concomitant]
  7. MYCOPHENOLATE MOFETIL (CELLCEPT) [Concomitant]
  8. CIMZIA [Suspect]
     Indication: RHEUMATOID ARTHRITIS
     Route: 058
     Dates: start: 20110706, end: 20110908
  9. SYNTHROID [Concomitant]
  10. AMBIEN [Concomitant]

REACTIONS (2)
  - HEPATIC ENZYME INCREASED [None]
  - DRUG INEFFECTIVE [None]
